FAERS Safety Report 6321843-3 (Version None)
Quarter: 2009Q3

REPORT INFORMATION
  Report Type: 
  Country: None (occurrence: None)
  Receive Date: 20090821
  Receipt Date: 20090821
  Transmission Date: 20100115
  Serious: Yes (Other)
  Sender: FDA-Public Use
  Company Number: None

PATIENT
  Age: 62 Year
  Sex: Female
  Weight: 60.3284 kg

DRUGS (2)
  1. COMBIPATCH [Suspect]
     Indication: HORMONE REPLACEMENT THERAPY
     Dosage: 50/140 2X WK TRANSDERMAL
     Route: 062
  2. COMBIPATCH [Suspect]
     Indication: MENOPAUSE
     Dosage: 50/140 2X WK TRANSDERMAL
     Route: 062

REACTIONS (3)
  - HEADACHE [None]
  - NIGHT SWEATS [None]
  - PRODUCT QUALITY ISSUE [None]
